FAERS Safety Report 5711621-8 (Version None)
Quarter: 2008Q2

REPORT INFORMATION
  Report Type: 
  Country: None (occurrence: None)
  Receive Date: 20080421
  Receipt Date: 20080411
  Transmission Date: 20081010
  Serious: Yes (Disabling)
  Sender: FDA-Public Use
  Company Number: ZA-ASTRAZENECA-2008SE01956

PATIENT
  Age: 739 Month
  Sex: Male
  Weight: 95 kg

DRUGS (4)
  1. CRESTOR [Suspect]
     Indication: HYPERLIPIDAEMIA
     Route: 048
     Dates: start: 20070201, end: 20080301
  2. BISOPROLOL FUMARATE [Concomitant]
  3. ASPIRIN [Concomitant]
  4. COVERSYL [Concomitant]

REACTIONS (1)
  - TENDONITIS [None]
